FAERS Safety Report 5927771-7 (Version None)
Quarter: 2008Q4

REPORT INFORMATION
  Report Type: 
  Country: None (occurrence: None)
  Receive Date: 20081023
  Receipt Date: 20081020
  Transmission Date: 20090506
  Serious: Yes (Other)
  Sender: FDA-Public Use
  Company Number: US-BRISTOL-MYERS SQUIBB COMPANY-14375562

PATIENT
  Age: 43 Year
  Sex: Female

DRUGS (4)
  1. PACLITAXEL [Suspect]
     Indication: BREAST CANCER
     Dosage: AFTER TWO DOSES PACLITAXEL WAS CHANGED TO DOCETAXEL
  2. CYCLOPHOSPHAMIDE [Suspect]
     Indication: BREAST CANCER
  3. DOXORUBICIN HCL [Suspect]
     Indication: BREAST CANCER
  4. DOCETAXEL [Suspect]
     Indication: BREAST CANCER

REACTIONS (10)
  - ANAEMIA [None]
  - BURNING SENSATION [None]
  - DYSURIA [None]
  - FATIGUE [None]
  - MYALGIA [None]
  - NEUROPATHY PERIPHERAL [None]
  - PERIPHERAL SENSORY NEUROPATHY [None]
  - TERMINAL DRIBBLING [None]
  - URINARY HESITATION [None]
  - URINE FLOW DECREASED [None]
